FAERS Safety Report 25971771 (Version 2)
Quarter: 2025Q4

REPORT INFORMATION
  Report Type: Spontaneous
  Country: GB (occurrence: GB)
  Receive Date: 20251029
  Receipt Date: 20251218
  Transmission Date: 20260117
  Serious: Yes (Disabling, Other)
  Sender: ABBVIE
  Company Number: None

PATIENT
  Age: 64 Year
  Sex: Female
  Weight: 74 kg

DRUGS (1)
  1. ATOGEPANT [Suspect]
     Active Substance: ATOGEPANT
     Indication: Hemiplegic migraine
     Dosage: LAST ADMIN DATE: 2025, 60 MG
     Route: 048
     Dates: start: 20250530

REACTIONS (4)
  - Pancreatitis acute [Not Recovered/Not Resolved]
  - Decreased appetite [Unknown]
  - Medication error [Unknown]
  - Malaise [Unknown]

NARRATIVE: CASE EVENT DATE: 20250101
